FAERS Safety Report 10552441 (Version 2)
Quarter: 2014Q4

REPORT INFORMATION
  Report Type: Spontaneous
  Country: CN (occurrence: CN)
  Receive Date: 20141029
  Receipt Date: 20141114
  Transmission Date: 20150529
  Serious: Yes (Hospitalization)
  Sender: FDA-Public Use
  Company Number: CN-ASTRAZENECA-2014SE80407

PATIENT
  Age: 60 Year
  Sex: Female

DRUGS (2)
  1. PLENDIL [Suspect]
     Active Substance: FELODIPINE
     Indication: HYPERTENSION
     Route: 048
     Dates: start: 2014, end: 20141003
  2. PLENDIL [Suspect]
     Active Substance: FELODIPINE
     Indication: HYPERTENSION
     Route: 048
     Dates: end: 2014

REACTIONS (10)
  - Heart rate decreased [Recovered/Resolved]
  - Left atrial dilatation [Unknown]
  - Syncope [Recovered/Resolved]
  - Drug ineffective [Unknown]
  - Hypertension [Unknown]
  - Carotid arteriosclerosis [Unknown]
  - Fall [Recovered/Resolved]
  - Gingival hypertrophy [Recovering/Resolving]
  - Blood pressure inadequately controlled [Unknown]
  - Hypotension [Recovered/Resolved]

NARRATIVE: CASE EVENT DATE: 2012
